FAERS Safety Report 13849446 (Version 1)
Quarter: 2017Q3

REPORT INFORMATION
  Report Type: Spontaneous
  Country: US (occurrence: US)
  Receive Date: 20170809
  Receipt Date: 20170809
  Transmission Date: 20171127
  Serious: Yes (Other)
  Sender: FDA-Public Use
  Company Number: PHEH2017US023967

PATIENT
  Sex: Female

DRUGS (11)
  1. AMLODIPINE BESYLATE. [Concomitant]
     Active Substance: AMLODIPINE BESYLATE
     Indication: PRODUCT USED FOR UNKNOWN INDICATION
     Dosage: 1 DF, QD
     Route: 048
  2. SIMVASTATIN. [Concomitant]
     Active Substance: SIMVASTATIN
     Dosage: 20 MG, UNK
     Route: 065
     Dates: start: 20140820
  3. PLAQUENIL [Concomitant]
     Active Substance: HYDROXYCHLOROQUINE SULFATE
     Indication: PRODUCT USED FOR UNKNOWN INDICATION
     Dosage: 1 DF, QD (WITH FOOD OR MILK)
     Route: 065
  4. VITAMIN D3 [Concomitant]
     Active Substance: CHOLECALCIFEROL
     Indication: PRODUCT USED FOR UNKNOWN INDICATION
     Dosage: 1 DF, QD
     Route: 065
  5. SANDOSTATIN [Suspect]
     Active Substance: OCTREOTIDE ACETATE
     Indication: NEUROENDOCRINE TUMOUR
     Dosage: UNK
     Route: 065
     Dates: start: 20140205, end: 20140917
  6. GLUCAGON. [Concomitant]
     Active Substance: GLUCAGON
     Indication: PRODUCT USED FOR UNKNOWN INDICATION
     Dosage: 1 MG, UNK (KIT)
     Route: 065
  7. LEVOTHYROXINE SODIUM. [Concomitant]
     Active Substance: LEVOTHYROXINE SODIUM
     Indication: PRODUCT USED FOR UNKNOWN INDICATION
     Dosage: 1 DF, QD (ON AN EMPTY STOMACH IN THE MORNING)
     Route: 065
  8. LISINOPRIL. [Concomitant]
     Active Substance: LISINOPRIL
     Indication: PRODUCT USED FOR UNKNOWN INDICATION
     Dosage: 1 DF, QD
     Route: 065
  9. SIMVASTATIN. [Concomitant]
     Active Substance: SIMVASTATIN
     Indication: PRODUCT USED FOR UNKNOWN INDICATION
     Dosage: UNK
     Route: 065
     Dates: end: 20140917
  10. TYLENOL [Concomitant]
     Active Substance: ACETAMINOPHEN
     Indication: PRODUCT USED FOR UNKNOWN INDICATION
     Dosage: 325 MG, PRN (1 TABLET AS NEEDED)
     Route: 065
  11. CLOBETA [Concomitant]
     Active Substance: CLOBETASOL PROPIONATE\COAL TAR
     Indication: PRODUCT USED FOR UNKNOWN INDICATION
     Route: 065

REACTIONS (18)
  - Suprapubic pain [Unknown]
  - Weight decreased [Unknown]
  - Diarrhoea [Unknown]
  - Blood bilirubin increased [Unknown]
  - Hypoglycaemia [Unknown]
  - Malignant neoplasm progression [Unknown]
  - Dry mouth [Unknown]
  - Pancreatic neuroendocrine tumour [Unknown]
  - Frequent bowel movements [Unknown]
  - Hyperhidrosis [Unknown]
  - Pain in extremity [Unknown]
  - Nausea [Unknown]
  - Paraneoplastic syndrome [Unknown]
  - Hypersensitivity vasculitis [Unknown]
  - Metastases to bone [Unknown]
  - Headache [Unknown]
  - Back pain [Unknown]
  - Feeling hot [Unknown]

NARRATIVE: CASE EVENT DATE: 201402
